FAERS Safety Report 17354664 (Version 6)
Quarter: 2025Q3

REPORT INFORMATION
  Report Type: Report from Study
  Country: CH (occurrence: CH)
  Receive Date: 20200131
  Receipt Date: 20250717
  Transmission Date: 20251021
  Serious: Yes (Death, Hospitalization, Other)
  Sender: NOVARTIS
  Company Number: PHHY2019CH100574

PATIENT
  Age: 70 Year
  Sex: Female

DRUGS (11)
  1. KISQALI [Suspect]
     Active Substance: RIBOCICLIB SUCCINATE
     Indication: Breast cancer
     Route: 048
     Dates: start: 20190124, end: 20190207
  2. KISQALI [Suspect]
     Active Substance: RIBOCICLIB SUCCINATE
     Dosage: 600 MG, QD (3 WEEKS ON, 1 WEEK OFF)
     Route: 065
     Dates: start: 20190221, end: 20190514
  3. KISQALI [Suspect]
     Active Substance: RIBOCICLIB SUCCINATE
     Dosage: 200 MG, QD (3 WEEKS ON, 1 WEEK OFF)
     Route: 048
     Dates: start: 20190515, end: 20190627
  4. LETROZOLE [Suspect]
     Active Substance: LETROZOLE
     Indication: Breast cancer
     Dosage: 2.5 MG, QD
     Route: 048
     Dates: start: 20181231
  5. LETROZOLE [Suspect]
     Active Substance: LETROZOLE
     Route: 048
     Dates: start: 20190214
  6. ROCEPHIN [Concomitant]
     Active Substance: CEFTRIAXONE SODIUM
     Indication: Antibiotic therapy
     Route: 065
     Dates: start: 20190707, end: 20190707
  7. Novalgin [Concomitant]
     Indication: Infection
     Route: 065
     Dates: start: 20190707, end: 20190707
  8. CLOPIDOGREL [Concomitant]
     Active Substance: CLOPIDOGREL BISULFATE
     Indication: Product used for unknown indication
     Route: 048
     Dates: start: 20181204
  9. CYANOCOBALAMIN [Concomitant]
     Active Substance: CYANOCOBALAMIN
     Indication: Product used for unknown indication
     Route: 058
     Dates: start: 20181204
  10. DENOSUMAB [Concomitant]
     Active Substance: DENOSUMAB
     Indication: Bone disorder
     Route: 058
     Dates: start: 20190124
  11. CALCIUM [Concomitant]
     Active Substance: CALCIUM
     Indication: Prophylaxis
     Route: 048
     Dates: start: 20190214

REACTIONS (13)
  - Infection [Fatal]
  - Breast cancer [Fatal]
  - Malignant neoplasm progression [Fatal]
  - Pyrexia [Recovered/Resolved]
  - Pyrexia [Fatal]
  - Dysuria [Recovered/Resolved]
  - Leukopenia [Recovered/Resolved]
  - Epistaxis [Recovered/Resolved]
  - Decreased appetite [Unknown]
  - Fatigue [Unknown]
  - Nausea [Unknown]
  - Back pain [Unknown]
  - Abdominal pain [Recovered/Resolved]

NARRATIVE: CASE EVENT DATE: 20190101
